FAERS Safety Report 16357689 (Version 1)
Quarter: 2019Q2

REPORT INFORMATION
  Report Type: Spontaneous
  Country: PL (occurrence: PL)
  Receive Date: 20190527
  Receipt Date: 20190527
  Transmission Date: 20190711
  Serious: Yes (Other)
  Sender: FDA-Public Use
  Company Number: PL-BAUSCH-BL-2019-015010

PATIENT
  Age: 21 Year
  Sex: Male

DRUGS (5)
  1. D-PENICILLAMINE [Suspect]
     Active Substance: PENICILLAMINE
     Indication: HEPATO-LENTICULAR DEGENERATION
     Route: 065
  2. D-PENICILLAMINE [Suspect]
     Active Substance: PENICILLAMINE
     Dosage: INCREASED OVER 6 WEEKS
     Route: 065
  3. ZINC SULFATE [Concomitant]
     Active Substance: ZINC SULFATE\ZINC SULFATE ANHYDROUS
     Indication: HEPATO-LENTICULAR DEGENERATION
  4. D-PENICILLAMINE [Suspect]
     Active Substance: PENICILLAMINE
     Dosage: DECREASED
     Route: 065
  5. D-PENICILLAMINE [Suspect]
     Active Substance: PENICILLAMINE
     Dosage: FINAL DOSE
     Route: 065

REACTIONS (2)
  - Hepato-lenticular degeneration [Not Recovered/Not Resolved]
  - Condition aggravated [Not Recovered/Not Resolved]
